FAERS Safety Report 10015790 (Version 2)
Quarter: 2015Q1

REPORT INFORMATION
  Report Type: Not Available
  Country: SE (occurrence: SE)
  Receive Date: 20140317
  Receipt Date: 20150313
  Transmission Date: 20150720
  Serious: Yes (Other)
  Sender: FDA-Public Use
  Company Number: SE-NAPPMUNDI-GBR-2014-0017471

PATIENT
  Age: 70 Year
  Sex: Male

DRUGS (15)
  1. TEGRETOL [Concomitant]
     Active Substance: CARBAMAZEPINE
     Route: 065
  2. GLYCERYL TRINITRATE [Concomitant]
     Active Substance: NITROGLYCERIN
     Route: 060
  3. ENALAPRIL [Concomitant]
     Active Substance: ENALAPRIL
     Route: 065
  4. KALEORID [Concomitant]
     Active Substance: POTASSIUM CHLORIDE
     Dosage: UNK TABLET, UNK
     Route: 065
  5. FURIX [Concomitant]
     Active Substance: FUROSEMIDE
     Dosage: UNK CAPSL, UNK
     Route: 065
  6. CREON [Concomitant]
     Active Substance: PANCRELIPASE AMYLASE\PANCRELIPASE LIPASE\PANCRELIPASE PROTEASE
     Dosage: UNK CAPSL, UNK
     Route: 065
  7. OMEPRAZOLE. [Concomitant]
     Active Substance: OMEPRAZOLE
     Dosage: UNK CAPSL, UNK
     Route: 065
  8. ORALVITE [Concomitant]
     Dosage: UNK TABLET, UNK
  9. POSTAFEN                           /00072802/ [Concomitant]
     Dosage: UNK TABLET, UNK
     Route: 065
  10. TROMBYL [Concomitant]
     Active Substance: ASPIRIN
     Dosage: UNK TABLET, UNK
     Route: 065
  11. DOLCONTIN [Suspect]
     Active Substance: MORPHINE
     Indication: PRODUCT USED FOR UNKNOWN INDICATION
     Dosage: 6-7  DF^S
     Route: 048
     Dates: start: 20130116, end: 20130116
  12. BISOPROLOL [Concomitant]
     Active Substance: BISOPROLOL
     Route: 065
  13. PANODIL [Concomitant]
     Active Substance: ACETAMINOPHEN
     Route: 065
  14. ISOPTIN [Concomitant]
     Active Substance: VERAPAMIL HYDROCHLORIDE
     Dosage: UNK TABLET, UNK
     Route: 065
  15. SIMVASTATIN RANBAXY [Concomitant]
     Dosage: UNK TABLET, UNK
     Route: 065

REACTIONS (2)
  - Toxicity to various agents [Recovered/Resolved]
  - Intentional self-injury [Recovered/Resolved]

NARRATIVE: CASE EVENT DATE: 20140116
